FAERS Safety Report 4733441-3 (Version None)
Quarter: 2005Q3

REPORT INFORMATION
  Report Type: 
  Country: None (occurrence: None)
  Receive Date: 20050803
  Receipt Date: 20050722
  Transmission Date: 20060218
  Serious: Yes (Death)
  Sender: FDA-Public Use
  Company Number: US-JNJFOC-20050705538

PATIENT
  Sex: Male

DRUGS (1)
  1. DOXIL [Suspect]
     Indication: KAPOSI'S SARCOMA
     Route: 042

REACTIONS (3)
  - PULMONARY HAEMORRHAGE [None]
  - RESPIRATORY ARREST [None]
  - RESPIRATORY FAILURE [None]
